FAERS Safety Report 10262068 (Version 1)
Quarter: 2014Q2

REPORT INFORMATION
  Report Type: Report from Study
  Country: TW (occurrence: TW)
  Receive Date: 20140626
  Receipt Date: 20140626
  Transmission Date: 20141212
  Serious: Yes (Hospitalization)
  Sender: FDA-Public Use
  Company Number: TW-US-EMD SERONO, INC.-7301455

PATIENT
  Sex: Female

DRUGS (1)
  1. SAIZEN [Suspect]
     Indication: GROWTH HORMONE DEFICIENCY
     Dates: end: 20121030

REACTIONS (3)
  - Pyrexia [Recovered/Resolved]
  - Cough [Recovering/Resolving]
  - Pneumonia [Recovering/Resolving]
